FAERS Safety Report 5352386-1 (Version None)
Quarter: 2007Q2

REPORT INFORMATION
  Report Type: 
  Country: None (occurrence: None)
  Receive Date: 20070611
  Receipt Date: 20070606
  Transmission Date: 20071010
  Serious: Yes (Hospitalization)
  Sender: FDA-Public Use
  Company Number: JP-BRISTOL-MYERS SQUIBB COMPANY-13807912

PATIENT
  Age: 64 Year
  Sex: Male

DRUGS (4)
  1. TAXOL [Suspect]
     Indication: NASAL SINUS CANCER
     Route: 041
  2. CISPLATIN [Suspect]
     Indication: NASAL SINUS CANCER
  3. RADIATION THERAPY [Suspect]
     Indication: NASAL SINUS CANCER
  4. FLUOROURACIL [Suspect]
     Indication: NASAL SINUS CANCER

REACTIONS (1)
  - RECALL PHENOMENON [None]
